FAERS Safety Report 6306579-7 (Version None)
Quarter: 2009Q3

REPORT INFORMATION
  Report Type: 
  Country: None (occurrence: None)
  Receive Date: 20090810
  Receipt Date: 20090729
  Transmission Date: 20100115
  Serious: Yes (Disabling, Other)
  Sender: FDA-Public Use
  Company Number: 2009AP003094

PATIENT
  Age: 56 Year
  Sex: Male

DRUGS (3)
  1. FLUOXETINE HCL [Suspect]
     Indication: GENERALISED ANXIETY DISORDER
     Dosage: 20MG; QD, 40 MG; QD
  2. FLUOXETINE HCL [Suspect]
     Indication: MAJOR DEPRESSION
     Dosage: 20MG; QD, 40 MG; QD
  3. PAROXETINE HCL [Concomitant]

REACTIONS (6)
  - ACTIVITIES OF DAILY LIVING IMPAIRED [None]
  - MASTICATION DISORDER [None]
  - PAIN [None]
  - PAIN IN JAW [None]
  - SOMNOLENCE [None]
  - TRISMUS [None]
